FAERS Safety Report 11678932 (Version 1)
Quarter: 2015Q4

REPORT INFORMATION
  Report Type: Spontaneous
  Country: US (occurrence: US)
  Receive Date: 20151028
  Receipt Date: 20151028
  Transmission Date: 20160304
  Serious: No
  Sender: FDA-Public Use
  Company Number: US-GLAXOSMITHKLINE-US2014GSK054881

PATIENT
  Sex: Female

DRUGS (2)
  1. LACTOBACILLUS [Suspect]
     Active Substance: LACTOBACILLUS ACIDOPHILUS
     Indication: PROBIOTIC THERAPY
     Dosage: UNK
     Route: 048
     Dates: start: 20141206, end: 20141210
  2. WELLBUTRIN XL [Suspect]
     Active Substance: BUPROPION HYDROCHLORIDE
     Indication: DEPRESSION
     Dosage: 300 MG, QD
     Route: 048
     Dates: start: 2012

REACTIONS (1)
  - Vertigo [Not Recovered/Not Resolved]
